FAERS Safety Report 14347383 (Version 1)
Quarter: 2018Q1

REPORT INFORMATION
  Report Type: Spontaneous
  Country: US (occurrence: US)
  Receive Date: 20180102
  Receipt Date: 20180102
  Transmission Date: 20180509
  Serious: Yes (Hospitalization, Disabling)
  Sender: FDA-Public Use
  Company Number: None

PATIENT
  Age: 34 Year
  Sex: Female
  Weight: 67.5 kg

DRUGS (3)
  1. IBUPROFEN. [Concomitant]
     Active Substance: IBUPROFEN
  2. ALPRAZOLAM. [Suspect]
     Active Substance: ALPRAZOLAM
     Indication: SLEEP DISORDER
     Dosage: ?          QUANTITY:0.5 TABLET(S);?
     Route: 048
     Dates: start: 20110518, end: 20160125
  3. MULTIVITAMIN [Concomitant]
     Active Substance: VITAMINS

REACTIONS (13)
  - Depression [None]
  - Drug tolerance [None]
  - Gastrointestinal disorder [None]
  - Paraesthesia [None]
  - Anxiety [None]
  - Bone pain [None]
  - Visual impairment [None]
  - Drug withdrawal syndrome [None]
  - Arthralgia [None]
  - Dysmenorrhoea [None]
  - Panic attack [None]
  - Muscle disorder [None]
  - Feeling abnormal [None]

NARRATIVE: CASE EVENT DATE: 20160814
